FAERS Safety Report 7280793-9 (Version None)
Quarter: 2011Q1

REPORT INFORMATION
  Report Type: 
  Country: None (occurrence: None)
  Receive Date: 20110203
  Receipt Date: 20110203
  Transmission Date: 20110831
  Serious: Yes (Hospitalization)
  Sender: FDA-Public Use
  Company Number: None

PATIENT
  Age: 59 Year
  Sex: Female
  Weight: 109 kg

DRUGS (3)
  1. ENALAPRIL MALEATE [Suspect]
     Indication: HYPERTENSION
     Dosage: 20 MG BID PO
     Route: 048
     Dates: start: 20041019, end: 20101112
  2. BUMETANIDE [Suspect]
  3. ALLOPURINOL [Suspect]
     Indication: GOUT
     Dosage: 100 MG QID PO
     Route: 048
     Dates: start: 20101109, end: 20101112

REACTIONS (1)
  - ANGIOEDEMA [None]
